FAERS Safety Report 16306300 (Version 2)
Quarter: 2019Q2

REPORT INFORMATION
  Report Type: Report from Study
  Country: AU (occurrence: AU)
  Receive Date: 20190513
  Receipt Date: 20190529
  Transmission Date: 20190711
  Serious: Yes (Hospitalization)
  Sender: FDA-Public Use
  Company Number: AU-NOVOPROD-657982

PATIENT
  Age: 60 Year
  Sex: Female
  Weight: 90 kg

DRUGS (1)
  1. SEMAGLUTIDE B 3.0 MG/ML PDS290 [Suspect]
     Active Substance: SEMAGLUTIDE
     Indication: OBESITY
     Dosage: 0.24 MG, QW
     Route: 058
     Dates: start: 20190306

REACTIONS (1)
  - Gastroenteritis [Recovered/Resolved]

NARRATIVE: CASE EVENT DATE: 20190322
